FAERS Safety Report 9719905 (Version 1)
Quarter: 2013Q4

REPORT INFORMATION
  Report Type: Spontaneous
  Country: GB (occurrence: GB)
  Receive Date: 20131128
  Receipt Date: 20131128
  Transmission Date: 20140711
  Serious: Yes (Other)
  Sender: FDA-Public Use
  Company Number: GB-009507513-1311GBR011095

PATIENT
  Age: 27 Year
  Sex: Female
  Weight: 63.5 kg

DRUGS (3)
  1. NEXPLANON [Suspect]
     Indication: CONTRACEPTION
     Dosage: UNK
     Route: 059
     Dates: start: 20131021, end: 20131106
  2. FERROUS FUMARATE [Concomitant]
     Indication: ANAEMIA
     Dosage: 210 MG, 2/1 DAYS
     Route: 048
     Dates: start: 20131010
  3. FOLIC ACID [Concomitant]
     Dosage: 0.4 MG, 1/1 DAYS
     Route: 048
     Dates: start: 20130925, end: 20131025

REACTIONS (3)
  - Device difficult to use [Unknown]
  - Implant site urticaria [Recovering/Resolving]
  - Swelling [Recovering/Resolving]
